FAERS Safety Report 4445616-1 (Version None)
Quarter: 2004Q3

REPORT INFORMATION
  Report Type: 
  Country: None (occurrence: None)
  Receive Date: 20040902
  Receipt Date: 20040818
  Transmission Date: 20050211
  Serious: No
  Sender: FDA-Public Use
  Company Number: F04200400236

PATIENT
  Age: 76 Year
  Sex: Female

DRUGS (2)
  1. ARIXTRA [Suspect]
     Indication: KNEE ARTHROPLASTY
     Dosage: 2.5 MG OD; SUBCUTANEOUS
     Route: 058
     Dates: start: 20030224, end: 20030320
  2. ARIXTRA [Suspect]
     Indication: THROMBOSIS PROPHYLAXIS
     Dosage: 2.5 MG OD; SUBCUTANEOUS
     Route: 058
     Dates: start: 20030224, end: 20030320

REACTIONS (1)
  - SHOCK [None]
